FAERS Safety Report 10272304 (Version 1)
Quarter: 2014Q2

REPORT INFORMATION
  Report Type: Report from Study
  Country: US (occurrence: None)
  Receive Date: 20140627
  Receipt Date: 20140627
  Transmission Date: 20141212
  Serious: Yes (Other)
  Sender: FDA-Public Use
  Company Number: AUR-APL-2014-06820

PATIENT
  Age: 56 Year
  Sex: Female
  Weight: 68.7 kg

DRUGS (7)
  1. ATENOLOL [Suspect]
     Indication: BLOOD PRESSURE
     Route: 048
     Dates: start: 2012
  2. LISINOPRIL [Suspect]
     Indication: BLOOD PRESSURE ABNORMAL
     Route: 048
     Dates: start: 2013
  3. LEVOFLOXACIN [Suspect]
     Indication: ATYPICAL PNEUMONIA
  4. SYMBICORT [Suspect]
     Indication: BRONCHITIS CHRONIC
     Dosage: 1 PUFFS BID, RESPIRATORY
     Route: 055
     Dates: start: 2010
  5. SYMBICORT [Suspect]
     Indication: CHRONIC OBSTRUCTIVE PULMONARY DISEASE
     Dosage: 1 PUFFS BID, RESPIRATORY
     Route: 055
     Dates: start: 2010
  6. SEROQUEL (QUETIAPINE FUMARATE) [Suspect]
     Indication: BIPOLAR I DISORDER
     Route: 048
     Dates: start: 2004
  7. SEROQUEL (QUETIAPINE FUMARATE) [Suspect]
     Indication: SCHIZOAFFECTIVE DISORDER
     Route: 048
     Dates: start: 2004

REACTIONS (24)
  - Pericardial disease [None]
  - Middle insomnia [None]
  - Dyspnoea [None]
  - Weight increased [None]
  - Weight decreased [None]
  - Pharyngitis [None]
  - Tendon disorder [None]
  - Insomnia [None]
  - Drug ineffective [None]
  - Hypertension [None]
  - Blood pressure inadequately controlled [None]
  - Memory impairment [None]
  - Pain [None]
  - Neck pain [None]
  - Back pain [None]
  - Lung infection [None]
  - Atypical pneumonia [None]
  - Synovial cyst [None]
  - Chronic obstructive pulmonary disease [None]
  - Bronchitis chronic [None]
  - Pain in extremity [None]
  - Viral upper respiratory tract infection [None]
  - Joint range of motion decreased [None]
  - Oedema [None]
